FAERS Safety Report 6305653-9 (Version None)
Quarter: 2009Q3

REPORT INFORMATION
  Report Type: 
  Country: None (occurrence: None)
  Receive Date: 20090807
  Receipt Date: 20090727
  Transmission Date: 20100115
  Serious: Yes (Other)
  Sender: FDA-Public Use
  Company Number: ADE2009-0749

PATIENT
  Age: 54 Year
  Sex: Male

DRUGS (1)
  1. TOPIRAMATE [Suspect]
     Indication: PARTIAL SEIZURES
     Dosage: 25-150MG, DAILY

REACTIONS (2)
  - ERECTILE DYSFUNCTION [None]
  - LIBIDO INCREASED [None]
